FAERS Safety Report 8347613-2 (Version None)
Quarter: 2012Q2

REPORT INFORMATION
  Report Type: 
  Country: None (occurrence: None)
  Receive Date: 20120509
  Receipt Date: 20100916
  Transmission Date: 20120825
  Serious: Yes (Hospitalization, Other)
  Sender: FDA-Public Use
  Company Number: CN-ALLERGAN-1017087US

PATIENT
  Sex: Female

DRUGS (1)
  1. BOTULINUM TOXIN TYPE A [Suspect]
     Indication: SKIN WRINKLING
     Dosage: UNK
     Route: 030

REACTIONS (9)
  - OROPHARYNGEAL PAIN [None]
  - CHOKING SENSATION [None]
  - INSOMNIA [None]
  - ANXIETY [None]
  - VISION BLURRED [None]
  - BOTULISM [None]
  - EYELID PTOSIS [None]
  - UPPER RESPIRATORY TRACT INFECTION [None]
  - DEPRESSION [None]
